FAERS Safety Report 4925201-5 (Version None)
Quarter: 2006Q1

REPORT INFORMATION
  Report Type: 
  Country: None (occurrence: None)
  Receive Date: 20060228
  Receipt Date: 20060124
  Transmission Date: 20060701
  Serious: No
  Sender: FDA-Public Use
  Company Number: US-GLAXOSMITHKLINE-A0590738A

PATIENT
  Age: 64 Year
  Sex: Male

DRUGS (2)
  1. AVODART [Suspect]
     Indication: BENIGN PROSTATIC HYPERPLASIA
     Dosage: .5MG PER DAY
     Route: 048
     Dates: start: 20050801, end: 20051224
  2. NO CONCURRENT MEDICATION [Concomitant]

REACTIONS (4)
  - INSOMNIA [None]
  - PROSTATE EXAMINATION ABNORMAL [None]
  - SEXUAL DYSFUNCTION [None]
  - URINARY TRACT DISORDER [None]
